FAERS Safety Report 9274814 (Version 2)
Quarter: 2013Q2

REPORT INFORMATION
  Report Type: Spontaneous
  Country: DE (occurrence: None)
  Receive Date: 20130429
  Receipt Date: 20130429
  Transmission Date: 20140414
  Serious: No
  Sender: FDA-Public Use
  Company Number: 1304DEU010185

PATIENT
  Sex: Female

DRUGS (1)
  1. KEIMAX [Suspect]
     Route: 048

REACTIONS (2)
  - Nausea [None]
  - Migraine [None]
